FAERS Safety Report 9311919 (Version 1)
Quarter: 2013Q2

REPORT INFORMATION
  Report Type: Report from Study
  Country: US (occurrence: US)
  Receive Date: 20130528
  Receipt Date: 20130528
  Transmission Date: 20140414
  Serious: Yes (Other)
  Sender: FDA-Public Use
  Company Number: PHEH2013US011511

PATIENT
  Age: 53 Year
  Sex: Female

DRUGS (1)
  1. GLEEVEC [Suspect]
     Indication: CHRONIC MYELOID LEUKAEMIA (IN REMISSION)
     Dosage: 400 MG, DAILY
     Route: 048
     Dates: start: 2005

REACTIONS (3)
  - Tooth loss [Unknown]
  - Somnolence [Unknown]
  - Arthralgia [Unknown]
